APPROVED DRUG PRODUCT: URSODIOL
Active Ingredient: URSODIOL
Strength: 150MG
Dosage Form/Route: CAPSULE;ORAL
Application: A210344 | Product #002
Applicant: STRIDES PHARMA GLOBAL PTE LTD
Approved: Jan 16, 2026 | RLD: No | RS: No | Type: RX